FAERS Safety Report 7985571-0 (Version None)
Quarter: 2011Q4

REPORT INFORMATION
  Report Type: 
  Country: None (occurrence: None)
  Receive Date: 20111216
  Receipt Date: 20111213
  Transmission Date: 20120403
  Serious: No
  Sender: FDA-Public Use
  Company Number: US-PFIZER INC-2011269364

PATIENT
  Sex: Female
  Weight: 56.236 kg

DRUGS (2)
  1. MEDROXYPROGESTERONE ACETATE [Suspect]
     Indication: CONTRACEPTION
     Dosage: 150 MG, EVERY 3 MONTHS
     Dates: start: 20110413
  2. MULTI-VITAMINS [Concomitant]
     Indication: VITAMIN SUPPLEMENTATION
     Dosage: UNK
     Dates: start: 20060824, end: 20111027

REACTIONS (2)
  - INAPPROPRIATE SCHEDULE OF DRUG ADMINISTRATION [None]
  - UNINTENDED PREGNANCY [None]
